FAERS Safety Report 11927012 (Version 1)
Quarter: 2016Q1

REPORT INFORMATION
  Report Type: Spontaneous
  Country: JP (occurrence: JP)
  Receive Date: 20160119
  Receipt Date: 20160119
  Transmission Date: 20160526
  Serious: Yes (Hospitalization, Other)
  Sender: FDA-Public Use
  Company Number: JP-PFIZER INC-2015453551

PATIENT
  Age: 34 Year
  Sex: Female

DRUGS (2)
  1. NASANYL [Suspect]
     Active Substance: NAFARELIN ACETATE
     Indication: CONTRACEPTION
  2. NASANYL [Suspect]
     Active Substance: NAFARELIN ACETATE
     Indication: ENDOMETRIOSIS
     Dosage: 1 DF, 2X/DAY
     Route: 045

REACTIONS (2)
  - Carotid artery dissection [Unknown]
  - Cerebral infarction [Recovered/Resolved with Sequelae]

NARRATIVE: CASE EVENT DATE: 20151214
